FAERS Safety Report 7544366-2 (Version None)
Quarter: 2011Q2

REPORT INFORMATION
  Report Type: 
  Country: None (occurrence: None)
  Receive Date: 20110613
  Receipt Date: 20080418
  Transmission Date: 20111010
  Serious: Yes (Congenital Anomaly, Other)
  Sender: FDA-Public Use
  Company Number: PHHY2008CA04699

PATIENT
  Sex: Male

DRUGS (7)
  1. TIAZAC [Concomitant]
  2. ASPIRIN [Concomitant]
  3. DIABETA [Concomitant]
     Dosage: 5 MG, UNK
  4. CALCIUM CHANNEL BLOCKERS [Concomitant]
     Indication: HYPERTENSION
     Route: 048
  5. DIOVAN HCT [Suspect]
     Indication: HYPERTENSION
     Dosage: 185 MG, DAILY
  6. METFORMIN HCL [Concomitant]
  7. CRESTOR [Concomitant]

REACTIONS (1)
  - ADRENAL MASS [None]
